FAERS Safety Report 21573830 (Version 1)
Quarter: 2022Q4

REPORT INFORMATION
  Report Type: Spontaneous
  Country: US (occurrence: None)
  Receive Date: 20221108
  Receipt Date: 20221108
  Transmission Date: 20230113
  Serious: No
  Sender: FDA-Public Use
  Company Number: None

PATIENT
  Sex: Female

DRUGS (1)
  1. BOTOX [Suspect]
     Active Substance: ONABOTULINUMTOXINA
     Dosage: 300 UNITS OTHER INTRAMUSCULAR
     Route: 030

REACTIONS (3)
  - Atrial fibrillation [None]
  - Pneumonia [None]
  - Nephrolithiasis [None]
